FAERS Safety Report 4995858-1 (Version None)
Quarter: 2006Q2

REPORT INFORMATION
  Report Type: 
  Country: None (occurrence: None)
  Receive Date: 20060504
  Receipt Date: 20060421
  Transmission Date: 20061013
  Serious: Yes (Hospitalization)
  Sender: FDA-Public Use
  Company Number: S06-UKI-01584-01

PATIENT
  Age: 23 Year
  Sex: Male

DRUGS (11)
  1. ESCITALOPRAM OXALATE [Suspect]
     Indication: DEPRESSION
     Dosage: 20 MG QD PO
     Route: 048
     Dates: start: 20050801, end: 20060123
  2. ESCITALOPRAM OXALATE [Suspect]
     Indication: DEPRESSION
     Dosage: 400 MG ONCE PO
     Route: 048
     Dates: start: 20060123, end: 20060123
  3. ESCITALOPRAM OXALATE [Suspect]
     Indication: DEPRESSION
  4. RISPERIDONE [Suspect]
     Indication: AGITATION
     Dosage: 0.5 MG BID PO
     Route: 048
     Dates: start: 20050801
  5. RISPERIDONE [Suspect]
     Indication: ANXIETY
     Dosage: 0.5 MG BID PO
     Route: 048
     Dates: start: 20050801
  6. RISPERIDONE [Suspect]
     Indication: AGITATION
     Dosage: 10 MG ONCE PO
     Route: 048
     Dates: start: 20060123, end: 20060123
  7. RISPERIDONE [Suspect]
     Indication: ANXIETY
     Dosage: 10 MG ONCE PO
     Route: 048
     Dates: start: 20060123, end: 20060123
  8. RISPERIDONE [Suspect]
     Indication: AGITATION
  9. RISPERIDONE [Suspect]
     Indication: ANXIETY
  10. LANSOPRAZOLE [Concomitant]
  11. ZOPICLONE [Concomitant]

REACTIONS (9)
  - BALANCE DISORDER [None]
  - COLD SWEAT [None]
  - CONFUSIONAL STATE [None]
  - COORDINATION ABNORMAL [None]
  - DYSARTHRIA [None]
  - INTENTIONAL OVERDOSE [None]
  - MALAISE [None]
  - SOMNOLENCE [None]
  - TREMOR [None]
